FAERS Safety Report 4357090-4 (Version None)
Quarter: 2004Q2

REPORT INFORMATION
  Report Type: 
  Country: None (occurrence: None)
  Receive Date: 20040507
  Receipt Date: 20040426
  Transmission Date: 20050107
  Serious: Yes (Death, Other)
  Sender: FDA-Public Use
  Company Number: 2004022124

PATIENT
  Age: 65 Year
  Sex: Female

DRUGS (1)
  1. ATORVASTATIN (ATORVASTATIN) [Suspect]
     Indication: DYSLIPIDAEMIA
     Dosage: 10 MG (1 IN 1 D), ORAL
     Route: 048
     Dates: start: 20020901

REACTIONS (1)
  - SKIN CANCER [None]
